FAERS Safety Report 5313253-2 (Version None)
Quarter: 2007Q2

REPORT INFORMATION
  Report Type: 
  Country: None (occurrence: None)
  Receive Date: 20070501
  Receipt Date: 20070419
  Transmission Date: 20071010
  Serious: Yes (Death)
  Sender: FDA-Public Use
  Company Number: JP-JNJFOC-20060203281

PATIENT
  Sex: Female

DRUGS (8)
  1. LEUSTATIN [Suspect]
     Route: 042
  2. LEUSTATIN [Suspect]
     Route: 042
  3. LEUSTATIN [Suspect]
     Indication: B-CELL LYMPHOMA
     Route: 042
  4. NIFEDIPINE [Concomitant]
     Indication: HYPERTENSION
     Route: 048
  5. GRAN [Concomitant]
     Route: 058
  6. GRAN [Concomitant]
     Route: 058
  7. GRAN [Concomitant]
     Route: 058
  8. BAKTAR [Concomitant]
     Indication: ANTIFUNGAL PROPHYLAXIS
     Route: 048

REACTIONS (3)
  - B-CELL LYMPHOMA [None]
  - PLATELET COUNT DECREASED [None]
  - WHITE BLOOD CELL COUNT DECREASED [None]
